FAERS Safety Report 13201549 (Version 1)
Quarter: 2017Q1

REPORT INFORMATION
  Report Type: Spontaneous
  Country: None (occurrence: US)
  Receive Date: 20170209
  Receipt Date: 20170209
  Transmission Date: 20170428
  Serious: Yes (Hospitalization, Other)
  Sender: FDA-Public Use
  Company Number: US-ALKEM LABORATORIES LIMITED-US-ALKEM-2017-00046

PATIENT

DRUGS (3)
  1. METHADONE HYDROCHLORIDE. [Suspect]
     Active Substance: METHADONE HYDROCHLORIDE
     Dosage: THREE TIMES THE INITIAL DOSE
  2. METHADONE HYDROCHLORIDE. [Suspect]
     Active Substance: METHADONE HYDROCHLORIDE
     Indication: PAIN
     Dosage: UNKNOWN
  3. APIXABAN [Interacting]
     Active Substance: APIXABAN
     Indication: PAIN
     Dosage: UNKNOWN

REACTIONS (2)
  - Drug ineffective [Unknown]
  - Drug interaction [Unknown]
